FAERS Safety Report 10470239 (Version 1)
Quarter: 2014Q3

REPORT INFORMATION
  Report Type: Spontaneous
  Country: US (occurrence: None)
  Receive Date: 20140922
  Receipt Date: 20140922
  Transmission Date: 20150326
  Serious: Yes (Hospitalization, Other)
  Sender: FDA-Public Use
  Company Number: None

PATIENT
  Age: 83 Year
  Sex: Male
  Weight: 71.9 kg

DRUGS (1)
  1. IODIXANOL [Suspect]
     Active Substance: IODIXANOL
     Indication: HEPATIC CYST
     Dates: start: 20140601, end: 20140709

REACTIONS (3)
  - Renal failure acute [None]
  - Contrast media reaction [None]
  - Renal tubular necrosis [None]

NARRATIVE: CASE EVENT DATE: 20140709
